FAERS Safety Report 6802671-9 (Version None)
Quarter: 2010Q2

REPORT INFORMATION
  Report Type: 
  Country: None (occurrence: None)
  Receive Date: 20100628
  Receipt Date: 20100616
  Transmission Date: 20101027
  Serious: Yes (Death)
  Sender: FDA-Public Use
  Company Number: US-JNJFOC-20100405425

PATIENT
  Sex: Female
  Weight: 82.1 kg

DRUGS (4)
  1. REMICADE [Suspect]
     Indication: PSORIATIC ARTHROPATHY
     Route: 042
     Dates: start: 20090715, end: 20090902
  2. REMICADE [Suspect]
     Route: 042
     Dates: start: 20090715, end: 20090902
  3. REMICADE [Suspect]
     Route: 042
     Dates: start: 20090715, end: 20090902
  4. REMICADE [Suspect]
     Route: 042
     Dates: start: 20090715, end: 20090902

REACTIONS (1)
  - ACUTE MYELOID LEUKAEMIA [None]
